FAERS Safety Report 10948631 (Version 1)
Quarter: 2015Q1

REPORT INFORMATION
  Report Type: Spontaneous
  Country: US (occurrence: None)
  Receive Date: 20150323
  Receipt Date: 20150323
  Transmission Date: 20150721
  Serious: No
  Sender: FDA-Public Use
  Company Number: None

PATIENT
  Age: 70 Year
  Sex: Male
  Weight: 92.99 kg

DRUGS (6)
  1. TAMSULOSIN [Suspect]
     Active Substance: TAMSULOSIN
     Indication: PROSTATOMEGALY
     Dosage: 1
     Route: 048
     Dates: start: 20141229, end: 20150322
  2. CALCIUM [Concomitant]
     Active Substance: CALCIUM
  3. DAILY MULTIVITAMIN [Concomitant]
     Active Substance: VITAMINS
  4. LEVOXYL [Concomitant]
     Active Substance: LEVOTHYROXINE SODIUM
  5. EFFEXOR [Concomitant]
     Active Substance: VENLAFAXINE HYDROCHLORIDE
  6. AVODART [Concomitant]
     Active Substance: DUTASTERIDE

REACTIONS (2)
  - Product quality issue [None]
  - Pollakiuria [None]

NARRATIVE: CASE EVENT DATE: 20150322
